FAERS Safety Report 13920929 (Version 3)
Quarter: 2018Q1

REPORT INFORMATION
  Report Type: Report from Study
  Country: FR (occurrence: FR)
  Receive Date: 20170830
  Receipt Date: 20180314
  Transmission Date: 20180508
  Serious: Yes (Hospitalization)
  Sender: FDA-Public Use
  Company Number: FR-VELOXIS PHARMACEUTICALS-2025304

PATIENT
  Age: 75 Year
  Weight: 84.18 kg

DRUGS (29)
  1. ENVARSUS XR [Suspect]
     Active Substance: TACROLIMUS
     Indication: PROPHYLAXIS AGAINST TRANSPLANT REJECTION
     Route: 048
     Dates: start: 20170624, end: 20170730
  2. ADVAGRAF [Concomitant]
     Active Substance: TACROLIMUS
     Dates: start: 20170709
  3. TAHOR [Concomitant]
     Active Substance: ATORVASTATIN CALCIUM
     Dates: start: 20140506
  4. ENVARSUS XR [Suspect]
     Active Substance: TACROLIMUS
     Route: 048
     Dates: start: 20170731
  5. DAFALGAN CODEINE [Concomitant]
     Active Substance: ACETAMINOPHEN\CODEINE PHOSPHATE
     Dates: start: 20171003
  6. OXYCONTIN [Concomitant]
     Active Substance: OXYCODONE HYDROCHLORIDE
  7. PROGRAF [Concomitant]
     Active Substance: TACROLIMUS\TACROLIMUS ANHYDROUS
     Dates: start: 20140111, end: 201401
  8. PROGRAF [Concomitant]
     Active Substance: TACROLIMUS\TACROLIMUS ANHYDROUS
     Dates: start: 201401
  9. COLCHICINE. [Concomitant]
     Active Substance: COLCHICINE
     Dates: start: 20170822, end: 20170829
  10. NOVONORM [Concomitant]
     Active Substance: REPAGLINIDE
     Dates: start: 20150213
  11. ISOPHANE INSULIN [Concomitant]
     Active Substance: INSULIN NOS
     Dates: start: 20150504, end: 201707
  12. NEURONTIN [Concomitant]
     Active Substance: GABAPENTIN
     Dates: start: 20170103, end: 201707
  13. CELLCEPT [Concomitant]
     Active Substance: MYCOPHENOLATE MOFETIL\MYCOPHENOLATE MOFETIL HYDROCHLORIDE
     Dates: start: 20140110
  14. BISOPROLOL FUMARATE. [Concomitant]
     Active Substance: BISOPROLOL FUMARATE
     Dates: start: 201401
  15. UVEDOSE [Concomitant]
     Active Substance: CHOLECALCIFEROL
     Dates: start: 20170127
  16. KARDEGIC [Concomitant]
     Active Substance: ASPIRIN DL-LYSINE
  17. INEXIUM [Concomitant]
     Active Substance: ESOMEPRAZOLE
     Dates: start: 20140318
  18. OXYNORM [Concomitant]
     Active Substance: OXYCODONE HYDROCHLORIDE
  19. DORNORMYL [Concomitant]
     Dates: start: 20170623
  20. NEURONTIN [Concomitant]
     Active Substance: GABAPENTIN
     Dates: start: 201707
  21. PLAVIX [Concomitant]
     Active Substance: CLOPIDOGREL BISULFATE
     Dates: start: 20170822
  22. ARANESP [Concomitant]
     Active Substance: DARBEPOETIN ALFA
     Dates: start: 20150213, end: 201707
  23. LEXOMIL [Concomitant]
     Active Substance: BROMAZEPAM
     Dates: start: 20170623
  24. ATORVASTATINE [Concomitant]
     Active Substance: ATORVASTATIN
     Dates: start: 201707
  25. ISOPHANE INSULIN [Concomitant]
     Active Substance: INSULIN NOS
     Dates: start: 201707
  26. AMLOR [Concomitant]
     Active Substance: AMLODIPINE BESYLATE
     Dates: start: 20141104
  27. LASILIX [Concomitant]
     Active Substance: FUROSEMIDE
     Dates: start: 20150504
  28. ISOPHANE INSULIN [Concomitant]
     Active Substance: INSULIN NOS
     Dates: start: 201707
  29. PLAVIX [Concomitant]
     Active Substance: CLOPIDOGREL BISULFATE
     Dates: start: 20170729, end: 201708

REACTIONS (3)
  - Ischaemic stroke [Recovered/Resolved with Sequelae]
  - Dysaesthesia [Recovered/Resolved with Sequelae]
  - Paraesthesia [Recovered/Resolved with Sequelae]

NARRATIVE: CASE EVENT DATE: 20170712
